FAERS Safety Report 9402906 (Version 2)
Quarter: 2013Q3

REPORT INFORMATION
  Report Type: Spontaneous
  Country: US (occurrence: US)
  Receive Date: 20130716
  Receipt Date: 20130819
  Transmission Date: 20140515
  Serious: Yes (Other)
  Sender: FDA-Public Use
  Company Number: US-UCBSA-091285

PATIENT
  Sex: Female

DRUGS (3)
  1. VIMPAT [Suspect]
     Indication: CONVULSION
     Dosage: STRENGTH: 150 MG
     Dates: end: 2012
  2. KEPPRA XR [Suspect]
     Indication: CONVULSION
     Dosage: STRENGTH: 750  MG
  3. KEPPRA XR [Suspect]
     Indication: CONVULSION

REACTIONS (3)
  - Diplopia [Unknown]
  - Fatigue [Unknown]
  - Inappropriate schedule of drug administration [Unknown]
